FAERS Safety Report 5323871-3 (Version None)
Quarter: 2007Q2

REPORT INFORMATION
  Report Type: 
  Country: None (occurrence: None)
  Receive Date: 20070510
  Receipt Date: 20070510
  Transmission Date: 20071010
  Serious: Yes (Other)
  Sender: FDA-Public Use
  Company Number: None

PATIENT
  Age: 37 Year
  Sex: Female
  Weight: 90.7194 kg

DRUGS (1)
  1. MIRENA [Suspect]
     Indication: CONTRACEPTION
     Dates: start: 20050620, end: 20070214

REACTIONS (7)
  - ALOPECIA [None]
  - ARTHRALGIA [None]
  - ECZEMA [None]
  - MOOD SWINGS [None]
  - PAIN IN EXTREMITY [None]
  - VAGINAL INFECTION [None]
  - WEIGHT INCREASED [None]
